FAERS Safety Report 9207724 (Version 1)
Quarter: 2013Q2

REPORT INFORMATION
  Report Type: Spontaneous
  Country: US (occurrence: US)
  Receive Date: 20130403
  Receipt Date: 20130403
  Transmission Date: 20140414
  Serious: Yes (Other)
  Sender: FDA-Public Use
  Company Number: US-PFIZER INC-2013101850

PATIENT
  Age: 25 Year
  Sex: Female

DRUGS (2)
  1. PREDNISONE [Suspect]
     Dosage: UNK
  2. MYCOPHENOLATE MOFETIL [Suspect]
     Dosage: UNK

REACTIONS (1)
  - Posterior reversible encephalopathy syndrome [Recovering/Resolving]
